FAERS Safety Report 6781025-8 (Version None)
Quarter: 2010Q2

REPORT INFORMATION
  Report Type: 
  Country: None (occurrence: None)
  Receive Date: 20100621
  Receipt Date: 20100217
  Transmission Date: 20101027
  Serious: Yes (Other)
  Sender: FDA-Public Use
  Company Number: US-ASTRAZENECA-2008UW21216

PATIENT
  Age: 47 Year
  Sex: Male
  Weight: 111.1 kg

DRUGS (27)
  1. SEROQUEL [Suspect]
     Indication: PSYCHOTIC DISORDER
     Dosage: 600 MG
     Route: 048
     Dates: start: 20040826
  2. SEROQUEL [Suspect]
     Indication: DEPRESSION
     Dosage: 600 MG
     Route: 048
     Dates: start: 20040826
  3. SEROQUEL [Suspect]
     Indication: SCHIZOPHRENIA
     Dosage: 600 MG
     Route: 048
     Dates: start: 20040826
  4. SEROQUEL [Suspect]
     Indication: ANXIETY
     Dosage: 600 MG
     Route: 048
     Dates: start: 20040826
  5. SEROQUEL [Suspect]
     Indication: POST-TRAUMATIC STRESS DISORDER
     Dosage: 600 MG
     Route: 048
     Dates: start: 20040826
  6. SEROQUEL [Suspect]
     Indication: MENTAL DISORDER
     Dosage: 600 MG
     Route: 048
     Dates: start: 20040826
  7. SEROQUEL [Suspect]
     Dosage: 50 MG TO 600 MG
     Route: 048
     Dates: start: 20040831, end: 20040910
  8. SEROQUEL [Suspect]
     Dosage: 50 MG TO 600 MG
     Route: 048
     Dates: start: 20040831, end: 20040910
  9. SEROQUEL [Suspect]
     Dosage: 50 MG TO 600 MG
     Route: 048
     Dates: start: 20040831, end: 20040910
  10. SEROQUEL [Suspect]
     Dosage: 50 MG TO 600 MG
     Route: 048
     Dates: start: 20040831, end: 20040910
  11. SEROQUEL [Suspect]
     Dosage: 50 MG TO 600 MG
     Route: 048
     Dates: start: 20040831, end: 20040910
  12. SEROQUEL [Suspect]
     Dosage: 50 MG TO 600 MG
     Route: 048
     Dates: start: 20040831, end: 20040910
  13. ABILIFY [Concomitant]
     Dates: start: 20000101, end: 20041001
  14. HALDOL [Concomitant]
  15. NAVANE [Concomitant]
  16. RISPERDAL [Concomitant]
     Dates: start: 19960101
  17. THORAZINE [Concomitant]
  18. TRILAFON [Concomitant]
  19. ZYPREXA [Concomitant]
  20. DIVALPROEX SODIUM [Concomitant]
     Dates: start: 20020202, end: 20041006
  21. BUPROPIN [Concomitant]
     Dates: start: 20040912
  22. LITHIUM [Concomitant]
     Dates: start: 20040920, end: 20040921
  23. MIRTAZAPINE [Concomitant]
     Dosage: 30 MG TO 45 MG
     Dates: start: 20020202
  24. TRAZODONE HYDROCHLORIDE [Concomitant]
     Dates: start: 20040921, end: 20041028
  25. ATIVAN [Concomitant]
     Indication: AFFECTIVE DISORDER
     Dates: start: 20040826, end: 20040912
  26. ATIVAN [Concomitant]
     Dosage: 1 MG,2 MG DISPENSED
     Dates: start: 20040909
  27. GABAPENTIN [Concomitant]
     Dates: start: 20040101

REACTIONS (4)
  - ADVERSE DRUG REACTION [None]
  - DIABETES MELLITUS [None]
  - NEUROLEPTIC MALIGNANT SYNDROME [None]
  - TARDIVE DYSKINESIA [None]
